FAERS Safety Report 8164460-5 (Version None)
Quarter: 2012Q1

REPORT INFORMATION
  Report Type: 
  Country: None (occurrence: None)
  Receive Date: 20120224
  Receipt Date: 20120215
  Transmission Date: 20120608
  Serious: Yes (Hospitalization, Disabling)
  Sender: FDA-Public Use
  Company Number: BR-ASTRAZENECA-2010SE40714

PATIENT
  Age: 80 Year
  Sex: Female
  Weight: 90 kg

DRUGS (12)
  1. PONDERA [Concomitant]
  2. SEROQUEL [Suspect]
     Indication: DEPRESSION
     Route: 048
     Dates: end: 20110101
  3. SEROQUEL [Suspect]
     Route: 048
     Dates: start: 20110101, end: 20110101
  4. CLONAZEPAM [Concomitant]
  5. ATACAND HCT [Suspect]
     Indication: HYPERTENSION
     Dosage: 16/12.5 MG
     Route: 048
  6. SEROQUEL [Suspect]
     Route: 048
     Dates: start: 20110101
  7. SEROQUEL [Suspect]
     Route: 048
     Dates: start: 20110101
  8. DEPAKOTE ER [Concomitant]
  9. GLUCOSAMINE SULFATE [Concomitant]
  10. CHONDROITIN SULFATE [Concomitant]
  11. SEROQUEL [Suspect]
     Indication: RESTLESSNESS
     Route: 048
     Dates: end: 20110101
  12. SEROQUEL [Suspect]
     Route: 048
     Dates: start: 20110101, end: 20110101

REACTIONS (8)
  - DRUG DOSE OMISSION [None]
  - AGGRESSION [None]
  - THORACIC VERTEBRAL FRACTURE [None]
  - BEDRIDDEN [None]
  - WEIGHT INCREASED [None]
  - FALL [None]
  - CRYING [None]
  - RESTLESSNESS [None]
